FAERS Safety Report 4412756-2 (Version None)
Quarter: 2004Q2

REPORT INFORMATION
  Report Type: 
  Country: None (occurrence: None)
  Receive Date: 20040630
  Receipt Date: 20040428
  Transmission Date: 20050107
  Serious: No
  Sender: FDA-Public Use
  Company Number: 04P-163-0253254-00

PATIENT
  Sex: Female
  Weight: 59.8748 kg

DRUGS (19)
  1. HUMIRA [Suspect]
     Indication: RHEUMATOID ARTHRITIS
     Dosage: 40 MG, 1 IN 2 WK SUBCUTANEOUS
     Route: 058
     Dates: start: 20040308, end: 20040405
  2. ATORVASTATIN [Concomitant]
  3. FUROSEMIDE [Concomitant]
  4. LANSOPRAZOLE [Concomitant]
  5. ASPIRIN [Concomitant]
  6. PHENOBARBITAL TAB [Concomitant]
  7. LISINOPRIL [Concomitant]
  8. FOLIC ACID [Concomitant]
  9. FLUOXETINE HCL [Concomitant]
  10. HYDROXYCHLOROQUINE PHOSPHATE [Concomitant]
  11. RISEDRONATE SODIUM [Concomitant]
  12. CALCIUM CARBONATE [Concomitant]
  13. GABAPENTIN [Concomitant]
  14. CENTRUM [Concomitant]
  15. RIMEXOLONE [Concomitant]
  16. CELLUVISIC [Concomitant]
  17. ACETAMINOPHEN [Concomitant]
  18. ELADIL OINTMENT [Concomitant]
  19. POTASSIUM CHLORIDE [Concomitant]

REACTIONS (12)
  - BACK PAIN [None]
  - COUGH [None]
  - ECZEMA [None]
  - INJECTION SITE PAIN [None]
  - NASOPHARYNGITIS [None]
  - NECK PAIN [None]
  - PAIN EXACERBATED [None]
  - PRURITUS [None]
  - RHINORRHOEA [None]
  - SNEEZING [None]
  - TINEA PEDIS [None]
  - WEIGHT INCREASED [None]
